FAERS Safety Report 25944836 (Version 1)
Quarter: 2025Q4

REPORT INFORMATION
  Report Type: Spontaneous
  Country: US (occurrence: US)
  Receive Date: 20251021
  Receipt Date: 20251021
  Transmission Date: 20260117
  Serious: No
  Sender: Phathom Pharmaceuticals
  Company Number: US-PHATHOM PHARMACEUTICALS INC.-2025PHT02471

PATIENT
  Age: 73 Year
  Sex: Female

DRUGS (8)
  1. VOQUEZNA [Suspect]
     Active Substance: VONOPRAZAN FUMARATE
     Indication: Gastrooesophageal reflux disease
     Dosage: 20 MG, 1X/DAY
     Route: 048
     Dates: start: 20250820
  2. FLUTICASONE PROPIONATE [Concomitant]
     Active Substance: FLUTICASONE PROPIONATE
  3. PROLIA [Concomitant]
     Active Substance: DENOSUMAB
  4. LATANOPROST [Concomitant]
     Active Substance: LATANOPROST
  5. ONDANSETRON HYDROCHLORIDE [Concomitant]
     Active Substance: ONDANSETRON HYDROCHLORIDE
  6. VITAMIN D2 [Concomitant]
     Active Substance: ERGOCALCIFEROL
  7. ROSUVASTATIN [Concomitant]
     Active Substance: ROSUVASTATIN
  8. CLONAZEPAM [Concomitant]
     Active Substance: CLONAZEPAM

REACTIONS (2)
  - Chest pain [Unknown]
  - Dyspnoea [Unknown]

NARRATIVE: CASE EVENT DATE: 20250101
